FAERS Safety Report 6833322-5 (Version None)
Quarter: 2010Q3

REPORT INFORMATION
  Report Type: 
  Country: None (occurrence: None)
  Receive Date: 20100712
  Receipt Date: 20100702
  Transmission Date: 20110219
  Serious: Yes (Hospitalization, Other)
  Sender: FDA-Public Use
  Company Number: IE-AMGEN-QUU385686

PATIENT
  Sex: Male

DRUGS (1)
  1. ARANESP [Suspect]
     Indication: RENAL FAILURE CHRONIC
     Dates: start: 20090917

REACTIONS (3)
  - FULL BLOOD COUNT DECREASED [None]
  - GASTRIC DISORDER [None]
  - HAEMOGLOBIN DECREASED [None]
